FAERS Safety Report 7788127-8 (Version None)
Quarter: 2011Q3

REPORT INFORMATION
  Report Type: 
  Country: None (occurrence: None)
  Receive Date: 20110927
  Receipt Date: 20110912
  Transmission Date: 20111222
  Serious: Yes (Hospitalization)
  Sender: FDA-Public Use
  Company Number: DSU-2011-06784

PATIENT
  Age: 53 Year
  Sex: Female
  Weight: 113.3993 kg

DRUGS (2)
  1. SINGULAIR (MONTELUKAST) (MONTELUKAST) [Concomitant]
  2. BENICAR [Suspect]
     Indication: HYPERTENSION
     Dosage: 40 MG (40 MG,QD), PER ORAL
     Route: 048
     Dates: start: 20020101

REACTIONS (1)
  - CEREBROVASCULAR ACCIDENT [None]
